FAERS Safety Report 21422664 (Version 1)
Quarter: 2022Q4

REPORT INFORMATION
  Report Type: Spontaneous
  Country: DE (occurrence: DE)
  Receive Date: 20221007
  Receipt Date: 20221007
  Transmission Date: 20230112
  Serious: Yes (Life-Threatening, Hospitalization)
  Sender: FDA-Public Use
  Company Number: DE-ANIPHARMA-2022-DE-000179

PATIENT
  Age: 65 Year
  Sex: Male

DRUGS (15)
  1. CANDESARTAN CILEXETIL [Suspect]
     Active Substance: CANDESARTAN CILEXETIL
     Indication: Product used for unknown indication
     Dosage: 16 MG BID
     Route: 048
  2. AMITRIPTYLINE [Concomitant]
     Active Substance: AMITRIPTYLINE
     Dosage: 25 MG TID
     Route: 048
  3. ENOXAPARIN [Concomitant]
     Active Substance: ENOXAPARIN
     Dosage: .4 ML DAILY
     Route: 058
  4. SITAGLIPTIN [Concomitant]
     Active Substance: SITAGLIPTIN
     Dosage: 50 MG DAILY
     Route: 048
  5. PANTOPRAZOLE SODIUM [Concomitant]
     Active Substance: PANTOPRAZOLE SODIUM
     Dosage: 40 MG BID
     Route: 048
  6. POLYETHYLENE GLYCOL 3350\POTASSIUM CHLORIDE\SODIUM BICARBONATE\SODIUM [Concomitant]
     Active Substance: POLYETHYLENE GLYCOL 3350\POTASSIUM CHLORIDE\SODIUM BICARBONATE\SODIUM CHLORIDE
     Dosage: 1-1-1-0, POWDER FOR DISSOLVING
     Route: 048
  7. BUPRENORPHINE [Concomitant]
     Active Substance: BUPRENORPHINE
     Dosage: 0.2 MG,1 STROKE IF NECESSARY
     Route: 050
  8. GABAPENTIN [Concomitant]
     Active Substance: GABAPENTIN
     Dosage: 400 MG, 1-0-0.5-0
     Route: 048
  9. MEROPENEM [Concomitant]
     Active Substance: MEROPENEM
     Dosage: 1 G TID
     Route: 048
  10. RISPERIDONE [Concomitant]
     Active Substance: RISPERIDONE
     Dosage: 1 MG BID
     Route: 048
  11. PIRITRAMIDE [Concomitant]
     Active Substance: PIRITRAMIDE
     Dosage: 3.75 MG, IF NECESSARY UP TO THREE TIMES A DAY / UP TO THREE TIMES A DAY IF REQUIRED
     Route: 065
  12. HYDROMORPHONE [Concomitant]
     Active Substance: HYDROMORPHONE
     Dosage: 40 MG BID/1.3 MG, IF NECESSARY, ONCE A DAY,
     Route: 048
  13. ASPIRIN [Concomitant]
     Active Substance: ASPIRIN
     Dosage: 100 MG DAILY
     Route: 048
  14. ATORVASTATIN [Concomitant]
     Active Substance: ATORVASTATIN
     Dosage: 40 MG DAILY
     Route: 048
  15. METHIONINE [Concomitant]
     Active Substance: METHIONINE
     Dosage: 500 MG DAILY
     Route: 048

REACTIONS (8)
  - Pallor [Recovering/Resolving]
  - Rhythm idioventricular [Recovering/Resolving]
  - Disturbance in attention [Recovering/Resolving]
  - Fall [Recovering/Resolving]
  - Hyperkalaemia [Recovering/Resolving]
  - Device malfunction [Recovering/Resolving]
  - Cardiogenic shock [Recovering/Resolving]
  - Acute kidney injury [Recovering/Resolving]
